FAERS Safety Report 14570006 (Version 1)
Quarter: 2018Q1

REPORT INFORMATION
  Report Type: Spontaneous
  Country: CA (occurrence: CA)
  Receive Date: 20180225
  Receipt Date: 20180225
  Transmission Date: 20180509
  Serious: Yes (Hospitalization, Other)
  Sender: FDA-Public Use
  Company Number: CA-NOVOPROD-586028

PATIENT
  Age: 46 Year
  Sex: Male

DRUGS (1)
  1. LIRAGLUTIDE [Suspect]
     Active Substance: LIRAGLUTIDE
     Indication: SUICIDE ATTEMPT
     Dosage: 36 MG, UNK
     Route: 058

REACTIONS (6)
  - Suicide attempt [Unknown]
  - Hypoglycaemia [Recovered/Resolved]
  - Vomiting [Recovered/Resolved]
  - Intentional overdose [Recovered/Resolved]
  - Nausea [Recovered/Resolved]
  - Abdominal pain [Recovered/Resolved]
